FAERS Safety Report 12756747 (Version 1)
Quarter: 2016Q3

REPORT INFORMATION
  Report Type: Spontaneous
  Country: US (occurrence: US)
  Receive Date: 20160917
  Receipt Date: 20160917
  Transmission Date: 20161109
  Serious: No
  Sender: FDA-Public Use
  Company Number: US-ASTRAZENECA-2012BM06980

PATIENT
  Age: 27517 Day
  Sex: Male
  Weight: 117.9 kg

DRUGS (9)
  1. BYDUREON [Suspect]
     Active Substance: EXENATIDE
     Indication: BLOOD INSULIN DECREASED
     Route: 058
     Dates: start: 20120316
  2. AMIODORONE [Suspect]
     Active Substance: AMIODARONE
     Indication: HEART RATE IRREGULAR
     Route: 048
  3. BYDUREON [Suspect]
     Active Substance: EXENATIDE
     Indication: BLOOD INSULIN DECREASED
     Route: 058
     Dates: start: 201605
  4. BYDUREON [Suspect]
     Active Substance: EXENATIDE
     Indication: GLYCOSYLATED HAEMOGLOBIN INCREASED
     Route: 058
     Dates: start: 201605
  5. BYDUREON [Suspect]
     Active Substance: EXENATIDE
     Indication: GLYCOSYLATED HAEMOGLOBIN INCREASED
     Route: 058
     Dates: start: 2015
  6. UNSPECIFIED INJECTION [Concomitant]
     Active Substance: UNSPECIFIED INGREDIENT
     Dosage: WEEKLY
  7. UNSPECIFIED MEDICATION [Concomitant]
     Active Substance: UNSPECIFIED INGREDIENT
     Dosage: WEEKLY
  8. BYDUREON [Suspect]
     Active Substance: EXENATIDE
     Indication: GLYCOSYLATED HAEMOGLOBIN INCREASED
     Route: 058
     Dates: start: 20120316
  9. BYDUREON [Suspect]
     Active Substance: EXENATIDE
     Indication: BLOOD INSULIN DECREASED
     Route: 058
     Dates: start: 2015

REACTIONS (4)
  - Glycosylated haemoglobin increased [Recovering/Resolving]
  - Injection site haemorrhage [Recovered/Resolved]
  - Injection site mass [Unknown]
  - Weight increased [Not Recovered/Not Resolved]

NARRATIVE: CASE EVENT DATE: 20120316
